FAERS Safety Report 4284619-7 (Version None)
Quarter: 2004Q1

REPORT INFORMATION
  Report Type: 
  Country: None (occurrence: None)
  Receive Date: 20040130
  Receipt Date: 20040109
  Transmission Date: 20041129
  Serious: Yes (Life-Threatening)
  Sender: FDA-Public Use
  Company Number: JP_040102484

PATIENT
  Age: 62 Year
  Sex: Male
  Weight: 67 kg

DRUGS (6)
  1. GEMZAR [Suspect]
     Indication: PANCREATIC CARCINOMA
     Dosage: 1000 MG/M2/OTHER
     Dates: start: 20030612, end: 20030626
  2. MS CONTIN [Concomitant]
  3. LOXONIN (LOXOPROFEN SODIUM) [Concomitant]
  4. MUCOSTA (REBAMIPIDE) [Concomitant]
  5. MAGNESIUM OXIDE [Concomitant]
  6. ALLELOCK (OLOPATADINE HYDROCHLORIDE) [Concomitant]

REACTIONS (4)
  - DRUG ERUPTION [None]
  - GENERAL PHYSICAL HEALTH DETERIORATION [None]
  - MALIGNANT NEOPLASM PROGRESSION [None]
  - PANCREATIC CARCINOMA STAGE IV [None]
